FAERS Safety Report 19372362 (Version 1)
Quarter: 2021Q2

REPORT INFORMATION
  Report Type: Spontaneous
  Country: US (occurrence: US)
  Receive Date: 20210603
  Receipt Date: 20210603
  Transmission Date: 20210717
  Serious: No
  Sender: FDA-Public Use
  Company Number: None

PATIENT
  Age: 63 Year
  Sex: Male
  Weight: 80 kg

DRUGS (1)
  1. BUPRENORPHINE/NALOXONE (BUPRENORPHINE 2MG / NALOXONE 0.5MG [Suspect]
     Active Substance: BUPRENORPHINE\NALOXONE
     Indication: PAIN
     Route: 060
     Dates: start: 20190519, end: 20190519

REACTIONS (6)
  - Oedema [None]
  - Anaphylactic reaction [None]
  - Nausea [None]
  - Vomiting [None]
  - Bradycardia [None]
  - Respiratory depression [None]

NARRATIVE: CASE EVENT DATE: 20190519
